FAERS Safety Report 20018493 (Version 1)
Quarter: 2021Q4

REPORT INFORMATION
  Report Type: Spontaneous
  Country: IT (occurrence: IT)
  Receive Date: 20211101
  Receipt Date: 20211101
  Transmission Date: 20220303
  Serious: Yes (Other)
  Sender: FDA-Public Use
  Company Number: IT-SUN PHARMACEUTICAL INDUSTRIES LTD-2021R1-315648

PATIENT
  Age: 32 Year
  Sex: Female

DRUGS (3)
  1. CISPLATIN [Suspect]
     Active Substance: CISPLATIN
     Indication: Chemotherapy
     Dosage: 60 MG/M.SQ
     Route: 065
     Dates: start: 201911, end: 201912
  2. VINORELBINE [Suspect]
     Active Substance: VINORELBINE TARTRATE
     Indication: Chemotherapy
     Dosage: 20 MG/M.SQ
     Route: 065
     Dates: start: 201911, end: 201912
  3. CAPECITABINE [Suspect]
     Active Substance: CAPECITABINE
     Indication: Chemotherapy
     Dosage: 500 MILLIGRAM, TID
     Route: 065
     Dates: start: 201911, end: 201912

REACTIONS (1)
  - Disease progression [Unknown]
